FAERS Safety Report 8013493-8 (Version None)
Quarter: 2011Q4

REPORT INFORMATION
  Report Type: 
  Country: None (occurrence: None)
  Receive Date: 20111229
  Receipt Date: 20111220
  Transmission Date: 20120403
  Serious: Yes (Hospitalization, Other)
  Sender: FDA-Public Use
  Company Number: JP-ASTRAZENECA-2011SE67147

PATIENT
  Age: 43 Year
  Sex: Male

DRUGS (17)
  1. CIPROFLOXACIN HCL [Concomitant]
     Indication: CELLULITIS
     Dates: start: 20111019, end: 20111023
  2. MAGNESIUM SULFATE [Concomitant]
     Indication: CONSTIPATION
     Route: 048
     Dates: start: 20111008
  3. FLOMOX [Concomitant]
     Indication: CELLULITIS
     Route: 048
     Dates: start: 20111019, end: 20111031
  4. NOVORAPID [Concomitant]
     Indication: DIABETES MELLITUS
     Route: 058
     Dates: start: 20111015
  5. MEROPENEM [Suspect]
     Indication: CELLULITIS
     Route: 042
     Dates: start: 20111024, end: 20111028
  6. HUMULIN R [Concomitant]
     Indication: DIABETES MELLITUS
     Route: 058
     Dates: start: 20111003
  7. PLETAL [Concomitant]
     Indication: PLATELET COUNT INCREASED
     Route: 048
     Dates: start: 20111024
  8. MEROPENEM [Suspect]
     Route: 042
     Dates: start: 20111101, end: 20111104
  9. LENDORMIN [Concomitant]
     Indication: INSOMNIA
     Route: 048
     Dates: start: 20111008, end: 20111020
  10. MAXIPIME [Concomitant]
     Indication: CELLULITIS
     Route: 042
     Dates: start: 20111012, end: 20111018
  11. PIPERACILLIN SODIUM [Concomitant]
     Indication: CELLULITIS
     Route: 042
     Dates: start: 20111003, end: 20111011
  12. SELBEX [Concomitant]
     Indication: GASTRITIS
     Route: 048
     Dates: start: 20111007, end: 20111014
  13. AMOBAN [Concomitant]
     Indication: INSOMNIA
     Route: 048
     Dates: start: 20111004
  14. MEROPENEM [Suspect]
     Route: 042
     Dates: start: 20111029, end: 20111031
  15. LANTUS [Concomitant]
     Indication: DIABETES MELLITUS
     Route: 058
     Dates: start: 20111004
  16. LEVOFLOXACIN [Concomitant]
     Indication: CELLULITIS
     Route: 048
     Dates: start: 20111006, end: 20111018
  17. VOLTAREN [Concomitant]
     Indication: PYREXIA
     Route: 054
     Dates: start: 20111004, end: 20111030

REACTIONS (1)
  - HYPERKALAEMIA [None]
